FAERS Safety Report 18444877 (Version 2)
Quarter: 2020Q4

REPORT INFORMATION
  Report Type: Spontaneous
  Country: US (occurrence: US)
  Receive Date: 20201030
  Receipt Date: 20201218
  Transmission Date: 20210114
  Serious: Yes (Other)
  Sender: FDA-Public Use
  Company Number: US-BEH-2020123799

PATIENT
  Age: 6 Year
  Sex: Female

DRUGS (2)
  1. HIZENTRA [Suspect]
     Active Substance: HUMAN IMMUNOGLOBULIN G
     Dosage: 3 GRAM, QW
     Route: 058
     Dates: start: 20200922
  2. HIZENTRA [Suspect]
     Active Substance: HUMAN IMMUNOGLOBULIN G
     Indication: IMMUNODEFICIENCY
     Dosage: 3 GRAM, QW
     Route: 058
     Dates: start: 20200923

REACTIONS (5)
  - Skin infection [Recovered/Resolved]
  - Pruritus [Unknown]
  - Swelling [Unknown]
  - Headache [Unknown]
  - Scab [Recovered/Resolved]

NARRATIVE: CASE EVENT DATE: 202010
